FAERS Safety Report 6228506-3 (Version None)
Quarter: 2009Q2

REPORT INFORMATION
  Report Type: 
  Country: None (occurrence: None)
  Receive Date: 20090612
  Receipt Date: 20090603
  Transmission Date: 20091009
  Serious: Yes (Death)
  Sender: FDA-Public Use
  Company Number: US-AMGEN-US350144

PATIENT
  Sex: Male

DRUGS (3)
  1. NPLATE [Suspect]
     Indication: IDIOPATHIC THROMBOCYTOPENIC PURPURA
     Route: 058
     Dates: start: 20090507, end: 20090603
  2. CORTICOSTEROIDS [Concomitant]
     Route: 065
  3. IMMUNOGLOBULINS [Concomitant]
     Route: 065

REACTIONS (1)
  - DEATH [None]
